FAERS Safety Report 5599154-3 (Version None)
Quarter: 2008Q1

REPORT INFORMATION
  Report Type: 
  Country: None (occurrence: None)
  Receive Date: 20080122
  Receipt Date: 20080114
  Transmission Date: 20080703
  Serious: Yes (Hospitalization)
  Sender: FDA-Public Use
  Company Number: US-BRISTOL-MYERS SQUIBB COMPANY-14039200

PATIENT
  Age: 72 Year
  Sex: Male
  Weight: 76 kg

DRUGS (3)
  1. CISPLATIN [Suspect]
     Indication: NEOPLASM MALIGNANT
     Dosage: FIRST COURSE WAS ON 12-NOV-2007
     Dates: start: 20071203, end: 20071203
  2. RADIATION THERAPY [Suspect]
     Indication: NEOPLASM MALIGNANT
     Dosage: 1 DOSAGE FORM = 70 GY. NO OF FRACTIONS 35; ELASPSED DAYS 10
     Dates: start: 20071230, end: 20071230
  3. FENTANYL [Concomitant]
     Route: 062

REACTIONS (6)
  - ATRIAL FIBRILLATION [None]
  - CEREBRAL INFARCTION [None]
  - DEPRESSED LEVEL OF CONSCIOUSNESS [None]
  - FEBRILE NEUTROPENIA [None]
  - OESOPHAGITIS [None]
  - PNEUMONIA [None]
